FAERS Safety Report 5136311-4 (Version None)
Quarter: 2006Q4

REPORT INFORMATION
  Report Type: 
  Country: None (occurrence: None)
  Receive Date: 20061027
  Receipt Date: 20061018
  Transmission Date: 20070319
  Serious: Yes (Other)
  Sender: FDA-Public Use
  Company Number: NL-GLAXOSMITHKLINE-B0443147A

PATIENT
  Age: 72 Year
  Sex: Male

DRUGS (5)
  1. DUTASTERIDE [Suspect]
     Indication: NEOPLASM PROPHYLAXIS
     Dosage: .5MG PER DAY
     Route: 048
     Dates: start: 20040816, end: 20060329
  2. XATRAL [Concomitant]
     Indication: BENIGN PROSTATIC HYPERPLASIA
     Dosage: 10MG PER DAY
     Route: 048
     Dates: start: 20040525
  3. PAROXETINE HCL [Concomitant]
     Indication: SEDATION
     Dosage: 20MG PER DAY
     Route: 048
     Dates: start: 19900101
  4. CIPROFLOXACIN [Concomitant]
     Indication: NEOPLASM PROPHYLAXIS
     Route: 048
     Dates: start: 20060813, end: 20060814
  5. MENTHOL [Concomitant]
     Dates: start: 20060815

REACTIONS (5)
  - ALANINE AMINOTRANSFERASE INCREASED [None]
  - BLOOD BILIRUBIN INCREASED [None]
  - FATIGUE [None]
  - GAMMA-GLUTAMYLTRANSFERASE INCREASED [None]
  - HEPATIC ENZYME INCREASED [None]
